FAERS Safety Report 8239987-8 (Version None)
Quarter: 2012Q1

REPORT INFORMATION
  Report Type: 
  Country: None (occurrence: None)
  Receive Date: 20120328
  Receipt Date: 20120322
  Transmission Date: 20120608
  Serious: Yes (Death, Other)
  Sender: FDA-Public Use
  Company Number: BE-AMGEN-BELSP2011070038

PATIENT
  Age: 78 Year
  Sex: Male

DRUGS (3)
  1. CAMPTO CONC [Concomitant]
     Indication: COLORECTAL CANCER METASTATIC
     Dosage: UNK
     Dates: start: 20100901
  2. VECTIBIX [Suspect]
     Indication: COLORECTAL CANCER METASTATIC
     Dosage: UNK
     Dates: start: 20091101
  3. MITOMYCINE DCI [Concomitant]
     Indication: COLORECTAL CANCER METASTATIC
     Dosage: UNK
     Dates: start: 20100901

REACTIONS (3)
  - DISEASE PROGRESSION [None]
  - SKIN TOXICITY [None]
  - DEATH [None]
